FAERS Safety Report 25953542 (Version 1)
Quarter: 2025Q4

REPORT INFORMATION
  Report Type: Spontaneous
  Country: US (occurrence: None)
  Receive Date: 20251022
  Receipt Date: 20251022
  Transmission Date: 20260118
  Serious: Yes (Death)
  Sender: FDA-CTU
  Company Number: None

PATIENT
  Sex: Male

DRUGS (3)
  1. NOURIANZ [Suspect]
     Active Substance: ISTRADEFYLLINE
     Indication: Parkinson^s disease
     Dosage: FREQUENCY : DAILY;?
     Route: 048
     Dates: start: 20230826
  2. NOURIANZ [Suspect]
     Active Substance: ISTRADEFYLLINE
     Indication: Psychotic disorder
  3. NOURIANZ [Suspect]
     Active Substance: ISTRADEFYLLINE
     Indication: Delusion

REACTIONS (1)
  - Death [None]
